FAERS Safety Report 8949879 (Version 2)
Quarter: 2012Q4

REPORT INFORMATION
  Report Type: 
  Country: FR (occurrence: FR)
  Receive Date: 20121206
  Receipt Date: 20121210
  Transmission Date: 20130627
  Serious: Yes (Death, Hospitalization)
  Sender: FDA-Public Use
  Company Number: FR-ELI_LILLY_AND_COMPANY-FR201211007546

PATIENT
  Age: 80 Year
  Sex: Male

DRUGS (7)
  1. GEMZAR [Suspect]
     Indication: ADENOCARCINOMA PANCREAS
     Dosage: UNK
     Route: 042
     Dates: start: 20120802, end: 20120813
  2. AMIODARONE [Concomitant]
     Route: 048
  3. KARDEGIC [Concomitant]
  4. NOVORAPID [Concomitant]
  5. LANTUS [Concomitant]
  6. JOSIR [Concomitant]
  7. CHIBRO-PROSCAR [Concomitant]
     Dosage: 5 mg, UNK

REACTIONS (2)
  - Neoplasm progression [Fatal]
  - Pneumonia [Recovered/Resolved]
